FAERS Safety Report 9466922 (Version 1)
Quarter: 2013Q3

REPORT INFORMATION
  Report Type: Spontaneous
  Country: JP (occurrence: JP)
  Receive Date: 20130820
  Receipt Date: 20130820
  Transmission Date: 20140515
  Serious: Yes (Death)
  Sender: FDA-Public Use
  Company Number: JP-PURDUE-GBR-2013-0015372

PATIENT
  Sex: 0

DRUGS (1)
  1. OXYCODONE HYDROCHLORIDE [Suspect]
     Indication: CANCER PAIN
     Dosage: UNK
     Route: 042
     Dates: start: 201307, end: 201307

REACTIONS (1)
  - Cardiac failure [Fatal]
